FAERS Safety Report 21075484 (Version 1)
Quarter: 2022Q3

REPORT INFORMATION
  Report Type: Spontaneous
  Country: JP (occurrence: JP)
  Receive Date: 20220713
  Receipt Date: 20220713
  Transmission Date: 20221027
  Serious: Yes (Other)
  Sender: FDA-Public Use
  Company Number: JP-MYLANLABS-2022M1050789

PATIENT
  Sex: Male

DRUGS (2)
  1. CLORAZEPATE DIPOTASSIUM [Suspect]
     Active Substance: CLORAZEPATE DIPOTASSIUM
     Indication: Headache
     Dosage: IN THE MORNING AND EVENING
     Route: 048
  2. CLORAZEPATE DIPOTASSIUM [Suspect]
     Active Substance: CLORAZEPATE DIPOTASSIUM
     Dosage: 1 CAPSULE
     Route: 048

REACTIONS (3)
  - Arrhythmia [Unknown]
  - Off label use [Unknown]
  - Inappropriate schedule of product administration [Unknown]
